FAERS Safety Report 25611670 (Version 1)
Quarter: 2025Q3

REPORT INFORMATION
  Report Type: Spontaneous
  Country: US (occurrence: US)
  Receive Date: 20250728
  Receipt Date: 20250728
  Transmission Date: 20251020
  Serious: No
  Sender: SANOFI AVENTIS
  Company Number: US-SA-2025SA215336

PATIENT
  Age: 75 Year
  Sex: Male

DRUGS (1)
  1. DUPIXENT [Suspect]
     Active Substance: DUPILUMAB
     Indication: Dermatitis
     Dosage: 300MG, QOW
     Route: 058
     Dates: start: 202504

REACTIONS (7)
  - Rash erythematous [Unknown]
  - Pruritus [Unknown]
  - Condition aggravated [Unknown]
  - Skin burning sensation [Unknown]
  - Condition aggravated [Unknown]
  - Dermatitis [Unknown]
  - Product use in unapproved indication [Unknown]

NARRATIVE: CASE EVENT DATE: 20250401
